FAERS Safety Report 5918086-1 (Version None)
Quarter: 2008Q4

REPORT INFORMATION
  Report Type: 
  Country: None (occurrence: None)
  Receive Date: 20081009
  Receipt Date: 20080926
  Transmission Date: 20090506
  Serious: Yes (Death)
  Sender: FDA-Public Use
  Company Number: 2008000723

PATIENT
  Age: 53 Year
  Sex: Male

DRUGS (12)
  1. ERLOTINIB (ERLOTINIB HCL) (TABLET) (ERLOTINIB) [Suspect]
     Indication: LUNG ADENOCARCINOMA
     Dosage: 150 MG, QD; ORAL
     Route: 048
     Dates: start: 20080220, end: 20080308
  2. PREDNISONE [Concomitant]
  3. HARNAL (TAMSULOSIN HYDROCHLORIDE) [Concomitant]
  4. FAMOTIDINE [Concomitant]
  5. BUP-4 (PROPIVERINE HYDROCHLORIDE) [Concomitant]
  6. DEPAS (ETIZOLAM) [Concomitant]
  7. FURSENNID (SENNA LEAF) [Concomitant]
  8. ZOLPIDEM TARTRATE [Concomitant]
  9. MAGNESIUM OXIDE (MAGNESIUM OXIDE) [Concomitant]
  10. NOVAMIN (PROCHLORPERAZINE) [Concomitant]
  11. PYDOXAL (PYRIDOXAL PHOSPHATE) [Concomitant]
  12. MORPHINE [Concomitant]

REACTIONS (12)
  - ACTIVATED PARTIAL THROMBOPLASTIN TIME PROLONGED [None]
  - ARTERIAL RUPTURE [None]
  - ASPHYXIA [None]
  - CARDIO-RESPIRATORY ARREST [None]
  - DISEASE PROGRESSION [None]
  - GASTROINTESTINAL HAEMORRHAGE [None]
  - HAEMATEMESIS [None]
  - HAEMATOMA [None]
  - NECROSIS [None]
  - PROTHROMBIN TIME PROLONGED [None]
  - PULMONARY HAEMORRHAGE [None]
  - RASH [None]
